FAERS Safety Report 6483827-4 (Version None)
Quarter: 2009Q4

REPORT INFORMATION
  Report Type: 
  Country: None (occurrence: None)
  Receive Date: 20091209
  Receipt Date: 20090506
  Transmission Date: 20100525
  Serious: No
  Sender: FDA-Public Use
  Company Number: US-AMGEN-KDL345963

PATIENT
  Sex: Female

DRUGS (2)
  1. ENBREL [Suspect]
     Indication: ANKYLOSING SPONDYLITIS
     Route: 058
  2. ARAVA [Concomitant]

REACTIONS (4)
  - ANKYLOSING SPONDYLITIS [None]
  - BACK PAIN [None]
  - FATIGUE [None]
  - WEIGHT INCREASED [None]
